FAERS Safety Report 10008630 (Version 1)
Quarter: 2014Q1

REPORT INFORMATION
  Report Type: Spontaneous
  Country: US (occurrence: US)
  Receive Date: 20140312
  Receipt Date: 20140312
  Transmission Date: 20141002
  Serious: No
  Sender: FDA-Public Use
  Company Number: US-INCYTE CORPORATION-2012IN000196

PATIENT
  Age: 76 Year
  Sex: Male

DRUGS (4)
  1. JAKAFI [Suspect]
     Indication: MYELOFIBROSIS
     Dosage: 5 MG, BID
     Route: 048
  2. JAKAFI [Suspect]
     Dosage: 10 MG, BID
     Route: 048
  3. LASIX [Concomitant]
     Dosage: UNK
     Route: 048
  4. ASPIRIN [Concomitant]
     Dosage: 81 MG, UNK
     Route: 048

REACTIONS (1)
  - Nasopharyngitis [Unknown]
